FAERS Safety Report 10251900 (Version 1)
Quarter: 2014Q2

REPORT INFORMATION
  Report Type: Spontaneous
  Country: US (occurrence: None)
  Receive Date: 20140619
  Receipt Date: 20140619
  Transmission Date: 20141212
  Serious: Yes (Other)
  Sender: FDA-Public Use
  Company Number: 2010S1004593

PATIENT
  Age: 53 Year
  Sex: Female

DRUGS (6)
  1. FLEET PHOSPHO-SODA [Suspect]
     Indication: COLONOSCOPY
     Route: 048
     Dates: start: 20021027, end: 20021028
  2. GLUCOPHAGE [Concomitant]
  3. DILTIAZEM [Concomitant]
  4. ZOCOR (SIMVASTATIN) [Concomitant]
  5. FUROSEMIDE (FUROSEMIDE) [Concomitant]
  6. KLOR-CON [Concomitant]

REACTIONS (16)
  - Injury [None]
  - Rash [None]
  - Snoring [None]
  - Medical device complication [None]
  - Iron deficiency anaemia [None]
  - Somnolence [None]
  - Upper airway resistance syndrome [None]
  - Coronary artery stenosis [None]
  - Diarrhoea [None]
  - Eustachian tube dysfunction [None]
  - Deafness neurosensory [None]
  - Bradycardia [None]
  - Acute coronary syndrome [None]
  - Sinus headache [None]
  - Sinus congestion [None]
  - Renal failure acute [None]
